FAERS Safety Report 10089025 (Version 1)
Quarter: 2014Q2

REPORT INFORMATION
  Report Type: Spontaneous
  Country: US (occurrence: None)
  Receive Date: 20140418
  Receipt Date: 20140418
  Transmission Date: 20141212
  Serious: Yes (Other)
  Sender: FDA-Public Use
  Company Number: None

PATIENT
  Age: 62 Year
  Sex: Female
  Weight: 70.76 kg

DRUGS (7)
  1. XARELTO RX # 6066940 REF.# 0 30 DRAW:0DS, 15 MG, JANSSEN PHARM. [Suspect]
     Indication: THROMBOSIS
     Dosage: BY MOUTH
  2. ALPRAZOLAM [Concomitant]
  3. FIBRO-GABAPENTIN [Concomitant]
  4. METOPROLOL [Concomitant]
  5. HYOSEGIMAX [Concomitant]
  6. LOVASTATIN [Concomitant]
  7. NEXIUM [Concomitant]

REACTIONS (7)
  - Epistaxis [None]
  - Dizziness [None]
  - Chest pain [None]
  - Memory impairment [None]
  - Amnesia [None]
  - Bone pain [None]
  - Dyspnoea [None]
